FAERS Safety Report 7462070-6 (Version None)
Quarter: 2011Q2

REPORT INFORMATION
  Report Type: 
  Country: None (occurrence: None)
  Receive Date: 20110506
  Receipt Date: 20110426
  Transmission Date: 20111010
  Serious: Yes (Other)
  Sender: FDA-Public Use
  Company Number: PHHY2011JP29478

PATIENT
  Age: 81 Year
  Sex: Female

DRUGS (6)
  1. HERBESSOR R [Concomitant]
     Dosage: 100 MG, UNK
     Route: 048
  2. EVISTA [Concomitant]
     Dosage: 60 MG, UNK
     Route: 048
  3. NEUROTROPIN [Concomitant]
     Dosage: 2 DF, UNK
     Route: 048
  4. ONEALFA [Suspect]
     Dosage: 1 MG, QD
     Route: 048
     Dates: start: 20080415, end: 20110404
  5. DIOVAN [Suspect]
     Indication: HYPERTENSION
     Dosage: 80 MG, QD
     Route: 048
     Dates: start: 20100603
  6. ARICEPT [Concomitant]
     Dosage: 10 MG, UNK
     Route: 048

REACTIONS (1)
  - BLOOD POTASSIUM DECREASED [None]
